FAERS Safety Report 8417362 (Version 3)
Quarter: 2013Q3

REPORT INFORMATION
  Report Type: Spontaneous
  Country: US (occurrence: US)
  Receive Date: 20120220
  Receipt Date: 20130809
  Transmission Date: 20140515
  Serious: Yes (Other)
  Sender: FDA-Public Use
  Company Number: US-ROCHE-792936

PATIENT
  Sex: Male
  Weight: 72.64 kg

DRUGS (3)
  1. ACCUTANE [Suspect]
     Indication: ACNE
     Route: 065
     Dates: start: 19980311, end: 19980731
  2. ACCUTANE [Suspect]
     Indication: URTICARIA
     Route: 065
     Dates: start: 1991, end: 1993
  3. DOXYCYCLINE [Concomitant]
     Route: 065

REACTIONS (4)
  - Crohn^s disease [Unknown]
  - Inflammatory bowel disease [Unknown]
  - Intestinal obstruction [Unknown]
  - Xerosis [Unknown]
